FAERS Safety Report 11894364 (Version 1)
Quarter: 2016Q1

REPORT INFORMATION
  Report Type: Spontaneous
  Country: US (occurrence: None)
  Receive Date: 20160106
  Receipt Date: 20160106
  Transmission Date: 20160526
  Serious: Yes (Hospitalization)
  Sender: FDA-Public Use
  Company Number: None

PATIENT
  Age: 79 Year
  Sex: Male
  Weight: 98 kg

DRUGS (3)
  1. VELCADE [Suspect]
     Active Substance: BORTEZOMIB
     Dates: end: 20151223
  2. RITUXIMAB (MOAB C2B8 ANTI CD20, CHIMERIC) [Suspect]
     Active Substance: RITUXIMAB
     Dates: end: 20151216
  3. BENDAMUSTINE HYDROCHLORIDE [Suspect]
     Active Substance: BENDAMUSTINE HYDROCHLORIDE
     Dates: end: 20151217

REACTIONS (15)
  - Hypothermia [None]
  - Hyperkalaemia [None]
  - Blood uric acid increased [None]
  - Pneumonia [None]
  - Pleural effusion [None]
  - Dyspnoea [None]
  - Haemoglobin decreased [None]
  - Pseudomonas test positive [None]
  - Klebsiella test positive [None]
  - Hypotension [None]
  - Sepsis [None]
  - Blood calcium increased [None]
  - Generalised oedema [None]
  - Acute kidney injury [None]
  - Blood phosphorus increased [None]

NARRATIVE: CASE EVENT DATE: 20151230
